FAERS Safety Report 10362453 (Version 1)
Quarter: 2014Q3

REPORT INFORMATION
  Report Type: Spontaneous
  Country: DE (occurrence: DE)
  Receive Date: 20140805
  Receipt Date: 20140805
  Transmission Date: 20150326
  Serious: Yes (Hospitalization)
  Sender: FDA-Public Use
  Company Number: PHHY2014DE095219

PATIENT
  Age: 7 Year
  Sex: Female

DRUGS (4)
  1. ISONIAZID. [Suspect]
     Active Substance: ISONIAZID
     Indication: PULMONARY TUBERCULOSIS
     Dosage: 150 MG, QD
     Route: 048
  2. ISONIAZID. [Suspect]
     Active Substance: ISONIAZID
     Dosage: 200 MG, UNK
  3. PYRAZINAMIDE. [Concomitant]
     Active Substance: PYRAZINAMIDE
     Indication: TUBERCULOSIS
     Dosage: 500 MG, UNK
  4. RIFAMPICIN [Concomitant]
     Active Substance: RIFAMPIN
     Indication: TUBERCULOSIS
     Dosage: 300 MG, UNK

REACTIONS (7)
  - Jarisch-Herxheimer reaction [Unknown]
  - Periphlebitis [Recovering/Resolving]
  - Anterior chamber inflammation [Recovering/Resolving]
  - Papilloedema [Recovering/Resolving]
  - Cystoid macular oedema [Recovering/Resolving]
  - Vision blurred [Recovering/Resolving]
  - Visual acuity reduced [Recovering/Resolving]
